FAERS Safety Report 4410074-X (Version None)
Quarter: 2004Q3

REPORT INFORMATION
  Report Type: 
  Country: None (occurrence: None)
  Receive Date: 20040728
  Receipt Date: 20040303
  Transmission Date: 20050211
  Serious: Yes (Hospitalization)
  Sender: FDA-Public Use
  Company Number: US-ROCHE-360497

PATIENT
  Age: 36 Year
  Sex: Male
  Weight: 74.5 kg

DRUGS (13)
  1. DACLIZUMAB [Suspect]
     Route: 042
     Dates: start: 20031016, end: 20031125
  2. SOLU-MEDROL [Concomitant]
     Dates: start: 20040209, end: 20040211
  3. UNASYN [Concomitant]
     Dates: start: 20040209, end: 20040211
  4. BENADRYL [Concomitant]
     Dates: start: 20040210, end: 20040211
  5. BACTROBAN [Concomitant]
     Dates: start: 20040210
  6. AUGMENTIN '250' [Concomitant]
     Dates: start: 20040212
  7. PREDNISONE [Concomitant]
     Dates: start: 20040212, end: 20040217
  8. COLAZAL [Concomitant]
     Dates: start: 20030727
  9. NEXIUM [Concomitant]
     Dates: start: 20030609
  10. CLARINEX [Concomitant]
     Dates: start: 20030615
  11. ACETAMINOPHEN [Concomitant]
     Dates: start: 20040131
  12. PSEUDOEPHEDRINE HCL [Concomitant]
     Dates: start: 20040204
  13. AUGMENTIN '250' [Concomitant]
     Dates: start: 20040206, end: 20040209

REACTIONS (5)
  - COLITIS ULCERATIVE [None]
  - DECREASED APPETITE [None]
  - FATIGUE [None]
  - FOLLICULITIS [None]
  - PYREXIA [None]
